FAERS Safety Report 24951051 (Version 3)
Quarter: 2025Q2

REPORT INFORMATION
  Report Type: Spontaneous
  Country: US (occurrence: US)
  Receive Date: 20250210
  Receipt Date: 20250526
  Transmission Date: 20250717
  Serious: No
  Sender: SANOFI AVENTIS
  Company Number: US-SANOFI-02398008

PATIENT
  Age: 67 Year
  Sex: Female

DRUGS (3)
  1. DUPIXENT [Suspect]
     Active Substance: DUPILUMAB
     Indication: Dermatitis atopic
     Route: 058
     Dates: start: 20250129, end: 20250129
  2. DUPIXENT [Suspect]
     Active Substance: DUPILUMAB
     Indication: Eczema
     Dosage: 300 MG, QOW
     Route: 058
     Dates: start: 202502, end: 2025
  3. DUPIXENT [Suspect]
     Active Substance: DUPILUMAB
     Dosage: 300 MG, QW
     Route: 058
     Dates: start: 2025

REACTIONS (5)
  - Irritable bowel syndrome [Unknown]
  - Diarrhoea [Recovering/Resolving]
  - Injection site swelling [Recovered/Resolved]
  - Inappropriate schedule of product administration [Unknown]
  - Product preparation error [Unknown]

NARRATIVE: CASE EVENT DATE: 20250101
